FAERS Safety Report 13769450 (Version 1)
Quarter: 2017Q3

REPORT INFORMATION
  Report Type: Spontaneous
  Country: US (occurrence: US)
  Receive Date: 20170719
  Receipt Date: 20170719
  Transmission Date: 20171127
  Serious: No
  Sender: FDA-Public Use
  Company Number: US-BAUSCH-BL-2017-000201

PATIENT
  Sex: Female

DRUGS (4)
  1. ALTACE [Concomitant]
     Active Substance: RAMIPRIL
     Indication: HYPERTENSION
  2. XIFAXAN [Suspect]
     Active Substance: RIFAXIMIN
     Indication: IRRITABLE BOWEL SYNDROME
  3. LEVEMIR [Concomitant]
     Active Substance: INSULIN DETEMIR
     Indication: DIABETES MELLITUS
     Route: 030
  4. XIFAXAN [Suspect]
     Active Substance: RIFAXIMIN
     Indication: COLITIS ULCERATIVE
     Route: 048
     Dates: start: 20150701

REACTIONS (1)
  - Off label use [Unknown]
